FAERS Safety Report 4499874-8 (Version None)
Quarter: 2004Q4

REPORT INFORMATION
  Report Type: 
  Country: None (occurrence: None)
  Receive Date: 20041108
  Receipt Date: 20041025
  Transmission Date: 20050328
  Serious: Yes (Hospitalization)
  Sender: FDA-Public Use
  Company Number: 2004084582

PATIENT
  Age: 52 Year
  Sex: Female

DRUGS (4)
  1. ZOLOFT [Suspect]
     Indication: ILL-DEFINED DISORDER
     Dosage: (50 MG), ORAL
     Route: 048
  2. CLORAZEPATE DIPOTASSIUM [Suspect]
     Indication: ILL-DEFINED DISORDER
     Dosage: (20 MG), ORAL
     Route: 048
  3. CLOMIPRAMINE HCL [Suspect]
     Indication: ILL-DEFINED DISORDER
     Dosage: (75 MG), ORAL
     Route: 048
  4. OXPRENOLOL HYDROCHLORIDE (OXPRENOLOL HYDROCHLORIDE) [Suspect]
     Indication: ILL-DEFINED DISORDER
     Dosage: ORAL
     Route: 048

REACTIONS (4)
  - DIFFICULTY IN WALKING [None]
  - DRUG ABUSER [None]
  - FEAR [None]
  - OVERDOSE [None]
